FAERS Safety Report 24882474 (Version 1)
Quarter: 2025Q1

REPORT INFORMATION
  Report Type: Spontaneous
  Country: TR (occurrence: TR)
  Receive Date: 20250124
  Receipt Date: 20250124
  Transmission Date: 20250409
  Serious: Yes (Life-Threatening, Hospitalization, Other)
  Sender: ACCORD
  Company Number: TR-Accord-465198

PATIENT
  Age: 64 Year
  Sex: Female

DRUGS (1)
  1. RAMIPRIL [Suspect]
     Active Substance: RAMIPRIL
     Indication: Hypertension

REACTIONS (2)
  - Purpura senile [Recovered/Resolved with Sequelae]
  - Angioedema [Recovered/Resolved]
